FAERS Safety Report 8348198-7 (Version None)
Quarter: 2012Q2

REPORT INFORMATION
  Report Type: 
  Country: None (occurrence: None)
  Receive Date: 20120509
  Receipt Date: 20120426
  Transmission Date: 20120825
  Serious: Yes (Other)
  Sender: FDA-Public Use
  Company Number: NL-MYLANLABS-2012S1008560

PATIENT
  Age: 80 Year
  Sex: Male

DRUGS (2)
  1. TOLBUTAMIDE [Concomitant]
     Indication: PRODUCT USED FOR UNKNOWN INDICATION
  2. METFORMIN HCL [Suspect]
     Indication: PRODUCT USED FOR UNKNOWN INDICATION
     Route: 048

REACTIONS (1)
  - BLOOD GLUCOSE INCREASED [None]
